FAERS Safety Report 6805897-3 (Version None)
Quarter: 2010Q2

REPORT INFORMATION
  Report Type: 
  Country: None (occurrence: None)
  Receive Date: 20100629
  Receipt Date: 20071115
  Transmission Date: 20101027
  Serious: No
  Sender: FDA-Public Use
  Company Number: US-PFIZER INC-2007097093

PATIENT
  Sex: Male

DRUGS (4)
  1. ALPRAZOLAM [Suspect]
     Indication: ANXIETY
  2. LISINOPRIL [Concomitant]
  3. TOPROL-XL [Concomitant]
  4. VYTORIN [Concomitant]

REACTIONS (2)
  - RASH PAPULAR [None]
  - URTICARIA [None]
